FAERS Safety Report 7492536-4 (Version None)
Quarter: 2011Q2

REPORT INFORMATION
  Report Type: 
  Country: None (occurrence: None)
  Receive Date: 20110519
  Receipt Date: 20110511
  Transmission Date: 20111010
  Serious: Yes (Hospitalization)
  Sender: FDA-Public Use
  Company Number: FR-PFIZER INC-FR-WYE-H02291808

PATIENT
  Age: 73 Year
  Sex: Male

DRUGS (8)
  1. PIROXICAM [Suspect]
     Indication: SCIATICA
  2. PIROXICAM [Suspect]
     Indication: BACK PAIN
     Route: 048
     Dates: start: 20071012, end: 20071018
  3. ACETAMINOPHEN W/ PROPOXYPHENE HCL [Suspect]
     Indication: SCIATICA
  4. PANTOPRAZOLE [Suspect]
     Dosage: 40 MG (FREQUENCY UNSPECIFIED)
     Route: 048
     Dates: start: 20071012, end: 20071018
  5. DILTIAZEM HCL [Suspect]
     Indication: ESSENTIAL HYPERTENSION
     Dosage: 300 MG (FREQUENCY UNSPECIFIED)
     Route: 048
     Dates: start: 20071012, end: 20071101
  6. MIOREL [Suspect]
     Indication: BACK PAIN
     Dosage: 4 MG (FREQUENCY UNSPEICIFIED)
     Route: 048
     Dates: start: 20071012, end: 20071101
  7. MIOREL [Suspect]
     Indication: SCIATICA
  8. ACETAMINOPHEN W/ PROPOXYPHENE HCL [Suspect]
     Indication: BACK PAIN
     Dosage: ^DF^
     Route: 048
     Dates: start: 20071012, end: 20071101

REACTIONS (2)
  - DRUG RASH WITH EOSINOPHILIA AND SYSTEMIC SYMPTOMS [None]
  - CHOLESTASIS [None]
